FAERS Safety Report 24432907 (Version 1)
Quarter: 2024Q4

REPORT INFORMATION
  Report Type: Report from Study
  Country: IT (occurrence: IT)
  Receive Date: 20241014
  Receipt Date: 20241014
  Transmission Date: 20250114
  Serious: Yes (Death, Other)
  Sender: PFIZER
  Company Number: IT-PFIZER INC-202400273642

PATIENT

DRUGS (6)
  1. RITUXIMAB [Suspect]
     Active Substance: RITUXIMAB
     Indication: B-cell lymphoma
     Dosage: 375 MG/M2, CYCLIC (ON DAY 1)
     Route: 042
  2. RITUXIMAB [Suspect]
     Active Substance: RITUXIMAB
     Indication: Non-Hodgkin^s lymphoma
  3. BENDAMUSTINE [Suspect]
     Active Substance: BENDAMUSTINE
     Indication: B-cell lymphoma
     Dosage: 90 MG/M2, CYCLIC (DAYS 1 AND 2)
     Route: 042
  4. BENDAMUSTINE [Suspect]
     Active Substance: BENDAMUSTINE
     Indication: Non-Hodgkin^s lymphoma
  5. COPANLISIB [Suspect]
     Active Substance: COPANLISIB
     Indication: B-cell lymphoma
     Dosage: 60 MG, CYCLIC (1-HOUR IV INFUSION)
     Route: 042
  6. COPANLISIB [Suspect]
     Active Substance: COPANLISIB
     Indication: Non-Hodgkin^s lymphoma

REACTIONS (1)
  - Febrile neutropenia [Fatal]
